FAERS Safety Report 19981345 (Version 1)
Quarter: 2021Q4

REPORT INFORMATION
  Report Type: Report from Study
  Country: US (occurrence: US)
  Receive Date: 20211021
  Receipt Date: 20211021
  Transmission Date: 20220303
  Serious: Yes (Death, Other)
  Sender: FDA-Public Use
  Company Number: US-MYLANLABS-2021M1061421

PATIENT
  Sex: Male
  Weight: 96 kg

DRUGS (1)
  1. CLOZAPINE [Suspect]
     Active Substance: CLOZAPINE
     Indication: Schizoaffective disorder bipolar type
     Dosage: 300 MILLIGRAM, QD
     Route: 048
     Dates: start: 20190405, end: 20200328

REACTIONS (2)
  - Death [Fatal]
  - Off label use [Unknown]
